FAERS Safety Report 20120904 (Version 1)
Quarter: 2021Q4

REPORT INFORMATION
  Report Type: Spontaneous
  Country: FR (occurrence: FR)
  Receive Date: 20211127
  Receipt Date: 20211127
  Transmission Date: 20220304
  Serious: Yes (Congenital Anomaly, Other)
  Sender: FDA-Public Use
  Company Number: FR-ABBVIE-21K-056-4173794-00

PATIENT
  Sex: Male
  Weight: 3.23 kg

DRUGS (3)
  1. VALPROATE SODIUM [Suspect]
     Active Substance: VALPROATE SODIUM
     Indication: Maternal exposure timing unspecified
     Route: 064
  2. VALIUM [Concomitant]
     Active Substance: DIAZEPAM
     Indication: Product used for unknown indication
  3. FOLIC ACID [Concomitant]
     Active Substance: FOLIC ACID
     Indication: Product used for unknown indication

REACTIONS (26)
  - Dysmorphism [Unknown]
  - Camptodactyly congenital [Unknown]
  - Plagiocephaly [Unknown]
  - Hypotonia [Unknown]
  - Congenital genitourinary abnormality [Unknown]
  - Hypospadias [Unknown]
  - Cryptorchism [Unknown]
  - Penile torsion [Unknown]
  - Arnold-Chiari malformation [Unknown]
  - Strabismus [Unknown]
  - Neurodevelopmental disorder [Unknown]
  - Dysgraphia [Unknown]
  - Disturbance in attention [Unknown]
  - Autism spectrum disorder [Unknown]
  - Behaviour disorder [Unknown]
  - Enuresis [Unknown]
  - Encopresis [Unknown]
  - Microcephaly [Unknown]
  - Diplegia [Unknown]
  - Language disorder [Unknown]
  - Cognitive disorder [Unknown]
  - Inguinal hernia [Unknown]
  - Tonsillar hypertrophy [Unknown]
  - Bradykinesia [Unknown]
  - Ear, nose and throat disorder [Unknown]
  - Fatigue [Unknown]
